FAERS Safety Report 6735304-0 (Version None)
Quarter: 2010Q2

REPORT INFORMATION
  Report Type: 
  Country: None (occurrence: None)
  Receive Date: 20100521
  Receipt Date: 20100519
  Transmission Date: 20101027
  Serious: Yes (Other)
  Sender: FDA-Public Use
  Company Number: US-RB-005715-10

PATIENT
  Sex: Female

DRUGS (2)
  1. SUBOXONE [Suspect]
     Route: 060
     Dates: start: 20050101
  2. LIBRIUM [Suspect]
     Indication: ALCOHOLISM
     Dosage: 1 PILL EVERY HOUR
     Route: 048
     Dates: start: 20090101, end: 20090101

REACTIONS (5)
  - ANGER [None]
  - DEHYDRATION [None]
  - HYPOTENSION [None]
  - LOSS OF CONSCIOUSNESS [None]
  - MEMORY IMPAIRMENT [None]
